FAERS Safety Report 7825905-0 (Version None)
Quarter: 2011Q4

REPORT INFORMATION
  Report Type: 
  Country: None (occurrence: None)
  Receive Date: 20111019
  Receipt Date: 20111007
  Transmission Date: 20120403
  Serious: Yes (Death, Hospitalization)
  Sender: FDA-Public Use
  Company Number: JP-ROCHE-771249

PATIENT
  Sex: Male

DRUGS (15)
  1. FLUOROURACIL [Concomitant]
     Dosage: INTRAVENOUS BOLUS FOLLOWED BY INTRAVENOUS DRIP.
     Route: 042
     Dates: start: 20100319, end: 20101201
  2. PYDOXAL [Concomitant]
     Route: 048
  3. FLUOROURACIL [Concomitant]
     Dosage: 600MG 1/3 WEEK FOLLOWED BY 1500MG 1/3 WEEK
     Route: 042
     Dates: start: 20101221, end: 20110317
  4. AVASTIN [Suspect]
     Route: 041
     Dates: start: 20100722, end: 20101201
  5. LEVOLEUCOVORIN CALCIUM [Concomitant]
     Route: 041
     Dates: start: 20101221, end: 20110317
  6. FAMOTIDINE [Concomitant]
     Route: 048
  7. AVASTIN [Suspect]
     Indication: LARGE INTESTINE CARCINOMA
     Dosage: FREQUENCY: 1/2 WEEKS
     Route: 041
     Dates: start: 20100722, end: 20101201
  8. AVASTIN [Suspect]
     Route: 041
     Dates: start: 20101221, end: 20110317
  9. IRINOTECAN HCL [Suspect]
     Route: 041
     Dates: start: 20101221, end: 20110317
  10. GRANISETRON [Concomitant]
     Route: 041
  11. DEXAMETHASONE SODIUM PHOSPHATE [Concomitant]
     Route: 041
  12. IRINOTECAN HCL [Suspect]
     Indication: LARGE INTESTINE CARCINOMA
     Route: 041
  13. AMLODIPINE [Concomitant]
     Route: 048
  14. OXALIPLATIN [Suspect]
     Indication: LARGE INTESTINE CARCINOMA
     Route: 041
     Dates: start: 20100319, end: 20101201
  15. FAMOTIDINE [Concomitant]

REACTIONS (18)
  - UNEVALUABLE EVENT [None]
  - HAEMOLYSIS [None]
  - RENAL IMPAIRMENT [None]
  - OXYGEN SATURATION DECREASED [None]
  - PALPITATIONS [None]
  - FLUSHING [None]
  - MELAENA [None]
  - URINE OUTPUT DECREASED [None]
  - DYSPNOEA [None]
  - THROMBOTIC THROMBOCYTOPENIC PURPURA [None]
  - DIARRHOEA [None]
  - STOMATITIS [None]
  - MALAISE [None]
  - EPISTAXIS [None]
  - PYREXIA [None]
  - CHILLS [None]
  - DEPRESSED LEVEL OF CONSCIOUSNESS [None]
  - HAEMOPTYSIS [None]
